FAERS Safety Report 12919266 (Version 3)
Quarter: 2017Q1

REPORT INFORMATION
  Report Type: Report from Study
  Country: US (occurrence: US)
  Receive Date: 20161108
  Receipt Date: 20170216
  Transmission Date: 20170428
  Serious: Yes (Hospitalization)
  Sender: FDA-Public Use
  Company Number: US-GILEAD-2016-0241272

PATIENT
  Age: 24 Year
  Sex: Female
  Weight: 48.1 kg

DRUGS (5)
  1. AMBRISENTAN [Suspect]
     Active Substance: AMBRISENTAN
     Indication: CORONARY ARTERY DISEASE
     Dosage: 10 MG, QD
     Route: 048
  2. ADCIRCA [Concomitant]
     Active Substance: TADALAFIL
  3. WARFARIN [Concomitant]
     Active Substance: WARFARIN
  4. REMODULIN [Suspect]
     Active Substance: TREPROSTINIL
     Indication: PULMONARY HYPERTENSION
     Dosage: 0.225 UG/KG, UNK
     Route: 058
     Dates: start: 20110914
  5. AMBRISENTAN [Suspect]
     Active Substance: AMBRISENTAN
     Indication: PULMONARY HYPERTENSION

REACTIONS (3)
  - Urinary tract infection [Recovered/Resolved]
  - Brain natriuretic peptide increased [Unknown]
  - Vomiting [Recovered/Resolved]

NARRATIVE: CASE EVENT DATE: 2016
